FAERS Safety Report 23355542 (Version 1)
Quarter: 2024Q1

REPORT INFORMATION
  Report Type: Spontaneous
  Country: CN (occurrence: CN)
  Receive Date: 20240102
  Receipt Date: 20240102
  Transmission Date: 20240410
  Serious: Yes (Other)
  Sender: FDA-Public Use
  Company Number: CN-002147023-NVSC2023CN266340

PATIENT
  Age: 44 Year
  Sex: Male

DRUGS (1)
  1. RANIBIZUMAB [Suspect]
     Active Substance: RANIBIZUMAB
     Indication: Diabetic retinopathy
     Route: 047
     Dates: start: 20231113, end: 20231119

REACTIONS (1)
  - Xerophthalmia [Recovering/Resolving]

NARRATIVE: CASE EVENT DATE: 20231113
